FAERS Safety Report 25538544 (Version 2)
Quarter: 2025Q3

REPORT INFORMATION
  Report Type: Report from Study
  Country: US (occurrence: US)
  Receive Date: 20250710
  Receipt Date: 20250902
  Transmission Date: 20251020
  Serious: Yes (Hospitalization)
  Sender: STEMLINE THERAPEUTICS
  Company Number: US-STEMLINE THERAPEUTICS, INC-2025-STML-US002369

PATIENT

DRUGS (1)
  1. ORSERDU [Suspect]
     Active Substance: ELACESTRANT
     Indication: Breast cancer female
     Dosage: 345 MG, DAILY
     Route: 048
     Dates: start: 20250628

REACTIONS (7)
  - Ascites [Unknown]
  - Pleural effusion [Unknown]
  - Somnolence [Unknown]
  - Pain [Unknown]
  - Lethargy [Unknown]
  - Asthenia [Unknown]
  - Fatigue [Unknown]
